FAERS Safety Report 5225595-X (Version None)
Quarter: 2006Q4

REPORT INFORMATION
  Report Type: 
  Country: None (occurrence: None)
  Receive Date: 20061201
  Receipt Date: 20060906
  Transmission Date: 20070319
  Serious: Yes (Life-Threatening, Hospitalization)
  Sender: FDA-Public Use
  Company Number: US200608003481

PATIENT
  Age: 40 Year
  Sex: Male
  Weight: 67.1 kg

DRUGS (1)
  1. CYMBALTA [Suspect]
     Indication: DEPRESSION
     Dosage: 60 MG, UNK, UN,
     Dates: start: 20060101, end: 20060101

REACTIONS (4)
  - ASTHENIA [None]
  - DEHYDRATION [None]
  - FEELING JITTERY [None]
  - MUSCLE CONTRACTIONS INVOLUNTARY [None]
